FAERS Safety Report 9844303 (Version 1)
Quarter: 2014Q1

REPORT INFORMATION
  Report Type: Spontaneous
  Country: GB (occurrence: None)
  Receive Date: 20140123
  Receipt Date: 20140123
  Transmission Date: 20141002
  Serious: Yes (Hospitalization)
  Sender: FDA-Public Use
  Company Number: AUR-APL-2014-00348

PATIENT
  Age: 74 Year
  Sex: Male

DRUGS (15)
  1. NAPROXEN [Suspect]
     Indication: PRODUCT USED FOR UNKNOWN INDICATION
     Dosage: 1000MG 500 MG 2 IN 1 D
     Route: 048
     Dates: start: 20131125, end: 20131209
  2. ANADIN EXTRA [Suspect]
     Indication: NECK PAIN
  3. AMOXICILLIN [Concomitant]
  4. CEFALEXIN (CEFALEXIN) [Concomitant]
  5. FUROSEMIDE [Concomitant]
  6. METFORMIN (METFORMIN) [Concomitant]
  7. MUCODYNE [Concomitant]
  8. OMEPRAZOLE (OMEPRAZOLE) [Concomitant]
  9. ORAMORPH (MORPHINE SULFATE PENTAHYDRATE) [Concomitant]
  10. PREDNISOLONE (PREDNISOLONE) [Concomitant]
  11. SALBUTAMOL (SALBUTAMOL) [Concomitant]
  12. SERETIDE (SERETIDE) [Concomitant]
  13. SIMVASTATIN (SIMVASTATIN) [Concomitant]
  14. SPIRONOLACTONE (SPIRONOLACTONE) [Concomitant]
  15. TIOTROPIUM (TIOTROPIUM) [Concomitant]

REACTIONS (4)
  - Faeces discoloured [None]
  - Gastrointestinal haemorrhage [None]
  - Haematemesis [None]
  - Malaise [None]
